FAERS Safety Report 9098591 (Version 2)
Quarter: 2013Q1

REPORT INFORMATION
  Report Type: Spontaneous
  Country: US (occurrence: US)
  Receive Date: 20130213
  Receipt Date: 20130312
  Transmission Date: 20140127
  Serious: Yes (Hospitalization)
  Sender: FDA-Public Use
  Company Number: US-B.I. PHARMACEUTICALS,INC./RIDGEFIELD-2013-BI-03523BP

PATIENT
  Age: 75 Year
  Sex: Male
  Weight: 90.71 kg

DRUGS (19)
  1. PRADAXA [Suspect]
     Indication: ANTICOAGULANT THERAPY
     Dates: start: 20111013
  2. PRADAXA [Suspect]
     Dosage: 150 MG
     Route: 048
     Dates: end: 20120118
  3. LIPITOR [Concomitant]
     Dosage: 40 MG
  4. NORVASC [Concomitant]
     Dosage: 10 MG
  5. DIOVAN [Concomitant]
     Dosage: 80 MG
  6. ALLOPURINOL [Concomitant]
     Dosage: 200 MG
  7. ZAROXOLYN [Concomitant]
     Dosage: 2.5 MG
  8. JANUVIA [Concomitant]
     Dosage: 100 MG
  9. COREG [Concomitant]
     Dosage: 25 MG
  10. LASIX [Concomitant]
     Dosage: 40 MG
  11. NIASPAN [Concomitant]
     Dosage: 1000 MG
  12. DIGOXIN [Concomitant]
     Dosage: 125 MCG
  13. CIALIS [Concomitant]
     Route: 048
  14. ASPIRIN [Concomitant]
     Dosage: 81 MG
  15. IRON [Concomitant]
     Dosage: 325 MG
  16. NOVOLOG [Concomitant]
     Dosage: 30 U
  17. FE C TAB PLUS VITAMIN B COMPLEX WITH C [Concomitant]
  18. LANTUS [Concomitant]
  19. FOLIC ACID [Concomitant]

REACTIONS (2)
  - Gastrointestinal haemorrhage [Unknown]
  - Epistaxis [Unknown]
